FAERS Safety Report 5147136-8 (Version None)
Quarter: 2006Q4

REPORT INFORMATION
  Report Type: 
  Country: None (occurrence: None)
  Receive Date: 20061103
  Receipt Date: 20061023
  Transmission Date: 20070319
  Serious: Yes (Hospitalization, Other)
  Sender: FDA-Public Use
  Company Number: 231559

PATIENT
  Age: 57 Year
  Sex: Female

DRUGS (2)
  1. MABTHERA (RITUXIMAB) CONC FOR SOLUTION FOR INFUSION [Suspect]
     Indication: B-CELL LYMPHOMA
  2. IFOSFAMIDE [Concomitant]

REACTIONS (3)
  - CONFUSIONAL STATE [None]
  - EXTENSOR PLANTAR RESPONSE [None]
  - NEUROTOXICITY [None]
